FAERS Safety Report 5718306-2 (Version None)
Quarter: 2008Q2

REPORT INFORMATION
  Report Type: 
  Country: None (occurrence: None)
  Receive Date: 20080425
  Receipt Date: 20080417
  Transmission Date: 20081010
  Serious: Yes (Hospitalization, Other)
  Sender: FDA-Public Use
  Company Number: DE-ABBOTT-07P-062-0414904-00

PATIENT
  Sex: Female
  Weight: 62 kg

DRUGS (10)
  1. HUMIRA [Suspect]
     Indication: RHEUMATOID ARTHRITIS
     Route: 058
     Dates: start: 20070301, end: 20070701
  2. HUMIRA [Suspect]
     Route: 058
     Dates: start: 20070901
  3. METHOTREXATE [Suspect]
     Indication: RHEUMATOID ARTHRITIS
     Route: 048
     Dates: start: 20070301
  4. CELECOXIB [Concomitant]
     Indication: RHEUMATOID ARTHRITIS
     Dosage: 200 - 400 MG
     Route: 048
  5. PREDNISOLONE [Concomitant]
     Indication: RHEUMATOID ARTHRITIS
     Dates: start: 20050501, end: 20070301
  6. PREDNISOLONE [Concomitant]
     Dosage: 5 MG DAILY
     Route: 048
     Dates: start: 20070301
  7. METHOTREXATE [Concomitant]
     Route: 042
     Dates: start: 20050901, end: 20060801
  8. RUBIEFOL [Concomitant]
     Indication: DRUG USE FOR UNKNOWN INDICATION
     Dates: end: 20070601
  9. CALCIMAGON D3 [Concomitant]
     Indication: RHEUMATOID ARTHRITIS
  10. PANTOPRAZOLE SODIUM [Concomitant]
     Indication: DRUG USE FOR UNKNOWN INDICATION
     Dosage: 40 MG
     Route: 048
     Dates: start: 20070809

REACTIONS (9)
  - ABDOMINAL ADHESIONS [None]
  - ACUTE ABDOMEN [None]
  - GASTROINTESTINAL DISORDER [None]
  - IMPAIRED HEALING [None]
  - PERITONEAL INFECTION [None]
  - RESPIRATORY FAILURE [None]
  - SMALL INTESTINAL OBSTRUCTION [None]
  - SMALL INTESTINAL PERFORATION [None]
  - STAPHYLOCOCCAL INFECTION [None]
